FAERS Safety Report 19347088 (Version 1)
Quarter: 2021Q2

REPORT INFORMATION
  Report Type: Spontaneous
  Country: US (occurrence: US)
  Receive Date: 20210528
  Receipt Date: 20210528
  Transmission Date: 20210717
  Serious: Yes (Hospitalization)
  Sender: FDA-Public Use
  Company Number: None

PATIENT
  Age: 56 Year
  Sex: Male

DRUGS (1)
  1. HUMIRA [Suspect]
     Active Substance: ADALIMUMAB
     Indication: PSORIATIC ARTHROPATHY
     Dosage: 1?MG/ML    ?1 PEN/40MG EVERY 2 WEEKS
     Route: 058
     Dates: start: 20180306, end: 20210420

REACTIONS (1)
  - Surgery [None]

NARRATIVE: CASE EVENT DATE: 20210420
